FAERS Safety Report 10173294 (Version 1)
Quarter: 2014Q2

REPORT INFORMATION
  Report Type: Spontaneous
  Country: CA (occurrence: None)
  Receive Date: 20140513
  Receipt Date: 20140513
  Transmission Date: 20141212
  Serious: Yes (Other)
  Sender: FDA-Public Use
  Company Number: FK201401660

PATIENT
  Sex: Female
  Weight: 87 kg

DRUGS (5)
  1. ELOXATIN [Suspect]
     Indication: PRODUCT USED FOR UNKNOWN INDICATION
     Dosage: 1 IN 2 WK
     Route: 042
  2. IRINOTECAN HYDROCHLORIDE [Suspect]
     Indication: PRODUCT USED FOR UNKNOWN INDICATION
     Dosage: 1 IN 2 WK, INTRAVENOUS (NOT OTHERWISE SPECIFIED)
     Route: 042
  3. DEXAMETHASONE [Concomitant]
  4. EMEND (APREPITANT) [Concomitant]
  5. ONDANSETRON [Concomitant]

REACTIONS (5)
  - Heart rate increased [None]
  - Blood pressure increased [None]
  - Pruritus [None]
  - Rash macular [None]
  - Urticaria [None]
